FAERS Safety Report 10418101 (Version 1)
Quarter: 2014Q2

REPORT INFORMATION
  Report Type: Spontaneous
  Country: US (occurrence: None)
  Receive Date: 20140609
  Receipt Date: 20140609
  Transmission Date: 20141212
  Serious: No
  Sender: FDA-Public Use
  Company Number: 2014TUS001539

PATIENT
  Sex: Female
  Weight: 83.9 kg

DRUGS (3)
  1. BRINTELLIX [Suspect]
     Indication: MAJOR DEPRESSION
     Route: 048
     Dates: start: 20140129
  2. IBUPROFEN [Concomitant]
  3. ADVIL (IBUPROFEN) [Concomitant]

REACTIONS (3)
  - Haematochezia [None]
  - Nausea [None]
  - Vomiting [None]
